FAERS Safety Report 10223143 (Version 1)
Quarter: 2014Q2

REPORT INFORMATION
  Report Type: Spontaneous
  Country: US (occurrence: US)
  Receive Date: 20140608
  Receipt Date: 20140608
  Transmission Date: 20141212
  Serious: No
  Sender: FDA-Public Use
  Company Number: US-ASTRAZENECA-2014SE36179

PATIENT
  Age: 600 Month
  Sex: Female

DRUGS (2)
  1. SYMBICORT [Suspect]
     Dosage: UNKNOWN DOSE TWICE A DAY
     Route: 055
  2. SYMBICORT [Suspect]
     Dosage: UNKNOWN DOSE DAILY
     Route: 055

REACTIONS (4)
  - Dyspnoea [Not Recovered/Not Resolved]
  - Asthma [Not Recovered/Not Resolved]
  - Intentional product misuse [Unknown]
  - Intentional product misuse [Not Recovered/Not Resolved]
